FAERS Safety Report 18073447 (Version 1)
Quarter: 2020Q3

REPORT INFORMATION
  Report Type: Spontaneous
  Country: GB (occurrence: GB)
  Receive Date: 20200727
  Receipt Date: 20200727
  Transmission Date: 20201103
  Serious: Yes (Disabling)
  Sender: FDA-Public Use
  Company Number: GB-PFIZER INC-2020276166

PATIENT
  Age: 31 Year
  Sex: Female

DRUGS (7)
  1. CARBAMAZEPINE. [Interacting]
     Active Substance: CARBAMAZEPINE
     Indication: TONIC CONVULSION
     Dosage: 600 MG, 2X/DAY
  2. LEVETIRACETAM. [Interacting]
     Active Substance: LEVETIRACETAM
     Dosage: 2000 MG, DAILY
  3. CARBAMAZEPINE. [Interacting]
     Active Substance: CARBAMAZEPINE
     Dosage: 500 MG, 2X/DAY
  4. CARBAMAZEPINE. [Interacting]
     Active Substance: CARBAMAZEPINE
     Dosage: 400 MG, 2X/DAY
  5. LEVETIRACETAM. [Suspect]
     Active Substance: LEVETIRACETAM
     Indication: TONIC CONVULSION
     Dosage: 500 MG, 1X/DAY
  6. LEVETIRACETAM. [Interacting]
     Active Substance: LEVETIRACETAM
     Dosage: 500 MG, 2X/DAY
  7. LEVETIRACETAM. [Interacting]
     Active Substance: LEVETIRACETAM
     Dosage: 2500 MG, DAILY

REACTIONS (7)
  - Drug interaction [Unknown]
  - Diplopia [Recovered/Resolved]
  - Off label use [Unknown]
  - Gait disturbance [Recovered/Resolved]
  - Toxicity to various agents [Unknown]
  - Prescribed overdose [Unknown]
  - Drug ineffective [Unknown]
